FAERS Safety Report 5623483-8 (Version None)
Quarter: 2008Q1

REPORT INFORMATION
  Report Type: 
  Country: None (occurrence: None)
  Receive Date: 20080212
  Receipt Date: 20080201
  Transmission Date: 20080703
  Serious: Yes (Other)
  Sender: FDA-Public Use
  Company Number: BR-WYE-H02557908

PATIENT
  Sex: Male
  Weight: 1.7 kg

DRUGS (1)
  1. TRIQUILAR [Suspect]
     Indication: ORAL CONTRACEPTION
     Route: 064
     Dates: start: 20061101, end: 20070201

REACTIONS (2)
  - DRUG EXPOSURE DURING PREGNANCY [None]
  - PREMATURE BABY [None]
